FAERS Safety Report 6168526-0 (Version None)
Quarter: 2009Q2

REPORT INFORMATION
  Report Type: 
  Country: None (occurrence: None)
  Receive Date: 20090427
  Receipt Date: 20090420
  Transmission Date: 20091009
  Serious: Yes (Other)
  Sender: FDA-Public Use
  Company Number: B0570576A

PATIENT
  Age: 61 Year
  Sex: Female
  Weight: 90 kg

DRUGS (7)
  1. ROSIGLITAZONE MALEATE [Suspect]
     Route: 048
     Dates: end: 20090320
  2. ATORVASTATIN [Concomitant]
  3. LANSOPRAZOLE [Concomitant]
  4. LOSARTAN POTASSIUM [Concomitant]
  5. GLICLAZIDE [Concomitant]
  6. METFORMIN HCL [Concomitant]
  7. ASPIRIN [Concomitant]

REACTIONS (2)
  - FALL [None]
  - FRACTURE [None]
